FAERS Safety Report 11919850 (Version 2)
Quarter: 2016Q1

REPORT INFORMATION
  Report Type: Spontaneous
  Country: SG (occurrence: SG)
  Receive Date: 20160115
  Receipt Date: 20160115
  Transmission Date: 20160526
  Serious: Yes (Hospitalization)
  Sender: FDA-Public Use
  Company Number: SG-ACTAVIS-2016-00760

PATIENT
  Age: 93 Year
  Sex: Male

DRUGS (6)
  1. CHLORPHENAMINE (UNKNOWN) [Interacting]
     Active Substance: CHLORPHENIRAMINE MALEATE
     Indication: UPPER RESPIRATORY TRACT INFECTION
     Dosage: 2 MG THREE TIMES DAILY
     Route: 065
  2. VALSARTAN (UNKNOWN) [Interacting]
     Active Substance: VALSARTAN
     Indication: PRODUCT USED FOR UNKNOWN INDICATION
     Dosage: 80 MG DAILY
     Route: 065
  3. LEVOFLOXACIN (UNKNOWN) [Interacting]
     Active Substance: LEVOFLOXACIN
     Indication: UPPER RESPIRATORY TRACT INFECTION
     Dosage: 500 MG DAILY
     Route: 065
  4. BICALUTAMIDE (UNKNOWN) [Suspect]
     Active Substance: BICALUTAMIDE
     Indication: PRODUCT USED FOR UNKNOWN INDICATION
     Dosage: 50 MG DAILY
     Route: 065
  5. MEMANTINE (UNKNOWN) [Interacting]
     Active Substance: MEMANTINE
     Indication: DEMENTIA ALZHEIMER^S TYPE
     Dosage: 10 MG TWICE DAILY
     Route: 065
  6. DEXTROMETHORPHAN (UNKNOWN) [Interacting]
     Active Substance: DEXTROMETHORPHAN
     Indication: UPPER RESPIRATORY TRACT INFECTION
     Dosage: UNKNOWN
     Route: 065

REACTIONS (2)
  - Myoclonus [Unknown]
  - Drug interaction [Unknown]
